FAERS Safety Report 7801420-5 (Version None)
Quarter: 2011Q4

REPORT INFORMATION
  Report Type: 
  Country: None (occurrence: None)
  Receive Date: 20111006
  Receipt Date: 20111006
  Transmission Date: 20120403
  Serious: Yes (Hospitalization)
  Sender: FDA-Public Use
  Company Number: None

PATIENT
  Age: 79 Year
  Sex: Male
  Weight: 99.8 kg

DRUGS (8)
  1. ASPIRIN [Suspect]
     Indication: CORONARY ARTERY BYPASS
     Dosage: 81 MG DAILY PO CHRONIC
  2. AVODART [Concomitant]
  3. SIMVASTATIN [Concomitant]
  4. LISINOPRIL [Concomitant]
  5. HUMULIN R [Concomitant]
  6. COMBIVENT [Concomitant]
  7. COUMADIN [Suspect]
     Indication: ATRIAL FLUTTER
     Dosage: 7.5MG QHS PO CHRONIC W/RECENT I____________
     Route: 048
  8. SYNTHROID [Concomitant]

REACTIONS (3)
  - MASS [None]
  - HAEMORRHAGE [None]
  - INTRACRANIAL PRESSURE INCREASED [None]
